FAERS Safety Report 14907498 (Version 1)
Quarter: 2018Q2

REPORT INFORMATION
  Report Type: Spontaneous
  Country: US (occurrence: US)
  Receive Date: 20180428
  Receipt Date: 20180428
  Transmission Date: 20180711
  Serious: Yes (Other)
  Sender: FDA-Public Use
  Company Number: None

PATIENT
  Age: 69 Year
  Sex: Female

DRUGS (9)
  1. AMLODIPINE 2.5MG [Concomitant]
     Active Substance: AMLODIPINE BESYLATE
     Dates: start: 20180105
  2. PAROXETINE. [Concomitant]
     Active Substance: PAROXETINE
     Dates: start: 20180105
  3. ATORVASTATIN 10MG [Concomitant]
     Active Substance: ATORVASTATIN
     Dates: start: 20180105
  4. IBRANCE [Suspect]
     Active Substance: PALBOCICLIB
     Indication: BREAST CANCER
     Route: 048
     Dates: start: 20180113, end: 20180428
  5. TRAZODONE [Concomitant]
     Active Substance: TRAZODONE HYDROCHLORIDE
     Dates: start: 20180105
  6. LISINOPRIL 10MG [Concomitant]
     Active Substance: LISINOPRIL
     Dates: start: 20180105
  7. METFORMIN 100MG [Concomitant]
     Dates: start: 20180105
  8. LETROZOLE 2.5MG [Concomitant]
     Active Substance: LETROZOLE
     Dates: start: 20180105
  9. DIAZEPAM 10MG [Concomitant]
     Active Substance: DIAZEPAM
     Dates: start: 20180105

REACTIONS (2)
  - Diarrhoea [None]
  - White blood cell count decreased [None]

NARRATIVE: CASE EVENT DATE: 20180406
